FAERS Safety Report 20149876 (Version 1)
Quarter: 2021Q4

REPORT INFORMATION
  Report Type: Spontaneous
  Country: US (occurrence: None)
  Receive Date: 20211206
  Receipt Date: 20211206
  Transmission Date: 20220303
  Serious: No
  Sender: FDA-Public Use
  Company Number: 2021A824378

PATIENT
  Age: 63 Year
  Sex: Male
  Weight: 95.3 kg

DRUGS (1)
  1. TAGRISSO [Suspect]
     Active Substance: OSIMERTINIB
     Indication: Lung carcinoma cell type unspecified stage 0
     Route: 048
     Dates: start: 20210210

REACTIONS (2)
  - Pain in extremity [Recovered/Resolved]
  - Road traffic accident [Recovered/Resolved]
